FAERS Safety Report 9423270 (Version 1)
Quarter: 2013Q3

REPORT INFORMATION
  Report Type: Other
  Country: US (occurrence: US)
  Receive Date: 20130726
  Receipt Date: 20130726
  Transmission Date: 20140515
  Serious: Yes (Hospitalization)
  Sender: FDA-Public Use
  Company Number: US-BRISTOL-MYERS SQUIBB COMPANY-19112382

PATIENT
  Age: 26 Year
  Sex: Female

DRUGS (1)
  1. IFOSFAMIDE [Suspect]
     Indication: RHABDOMYOSARCOMA
     Dosage: 1DF: 23.4G/M2

REACTIONS (2)
  - Fanconi syndrome acquired [Recovering/Resolving]
  - Nephrogenic diabetes insipidus [Recovered/Resolved]
